FAERS Safety Report 15734049 (Version 3)
Quarter: 2019Q2

REPORT INFORMATION
  Report Type: Report from Study
  Country: GB (occurrence: GB)
  Receive Date: 20181218
  Receipt Date: 20190530
  Transmission Date: 20190711
  Serious: Yes (Other)
  Sender: FDA-Public Use
  Company Number: GB-IPSEN BIOPHARMACEUTICALS, INC.-2018-19238

PATIENT
  Sex: Female

DRUGS (2)
  1. SOMATULINE AUTOGEL 60MG [Suspect]
     Active Substance: LANREOTIDE ACETATE
     Indication: NEUROENDOCRINE TUMOUR
     Dosage: 60MG/0.3ML
     Route: 065
  2. SOMATULINE AUTOGEL 60MG [Suspect]
     Active Substance: LANREOTIDE ACETATE
     Dosage: 60MG/0.3ML
     Route: 065

REACTIONS (4)
  - Product prescribing issue [Unknown]
  - Haemorrhage [Unknown]
  - Diarrhoea [Unknown]
  - Off label use [Unknown]
